FAERS Safety Report 16895661 (Version 1)
Quarter: 2019Q4

REPORT INFORMATION
  Report Type: Spontaneous
  Country: US (occurrence: US)
  Receive Date: 20190814
  Receipt Date: 20190814
  Transmission Date: 20200122
  Serious: No
  Sender: FDA-Public Use
  Company Number: None

PATIENT
  Age: 61 Year
  Sex: Male

DRUGS (2)
  1. PREDNISONE. [Concomitant]
     Active Substance: PREDNISONE
  2. ZYTIGA [Suspect]
     Active Substance: ABIRATERONE ACETATE
     Dates: start: 201905

REACTIONS (5)
  - Sexual dysfunction [None]
  - Hot flush [None]
  - Muscle atrophy [None]
  - Product dose omission [None]
  - Weight increased [None]

NARRATIVE: CASE EVENT DATE: 20190814
